FAERS Safety Report 5640535-7 (Version None)
Quarter: 2008Q1

REPORT INFORMATION
  Report Type: 
  Country: None (occurrence: None)
  Receive Date: 20080227
  Receipt Date: 20080218
  Transmission Date: 20080703
  Serious: Yes (Hospitalization, Other)
  Sender: FDA-Public Use
  Company Number: PHHY2008BR01955

PATIENT
  Sex: Female
  Weight: 74 kg

DRUGS (6)
  1. FEMARA [Suspect]
     Indication: BREAST CANCER
     Dosage: 2.5 MG, QD
     Route: 048
     Dates: start: 20071228
  2. MULTIVITAMIN PREPARATIONS [Concomitant]
     Dosage: 1 TABLET DAILY
     Route: 048
  3. PREDNISONE TAB [Concomitant]
     Dosage: 100 MG, QD
     Route: 048
  4. LEXAPRO [Concomitant]
     Dosage: 1 TABLET QD
     Route: 048
  5. OMEPRAZOLE [Concomitant]
     Dosage: UNK, QD
     Route: 048
  6. ZOMETA [Concomitant]
     Dosage: 1 APPLICATION
     Dates: start: 20080108

REACTIONS (5)
  - BIOPSY BREAST [None]
  - METASTASES TO BONE [None]
  - VISION BLURRED [None]
  - VISUAL ACUITY REDUCED [None]
  - VULVOVAGINAL DRYNESS [None]
